FAERS Safety Report 4337816-6 (Version None)
Quarter: 2004Q2

REPORT INFORMATION
  Report Type: 
  Country: None (occurrence: None)
  Receive Date: 20040413
  Receipt Date: 20040407
  Transmission Date: 20050107
  Serious: Yes (Hospitalization)
  Sender: FDA-Public Use
  Company Number: PHNU2004DE01486

PATIENT
  Age: 70 Year
  Sex: Male

DRUGS (6)
  1. CO-DIOVAN [Suspect]
     Indication: HYPERTENSION
     Dosage: 1 DF, QD
     Route: 048
     Dates: start: 20040101
  2. PROPAFENONE HYDROCHLORIDE [Concomitant]
     Dosage: UNK, UNK
  3. NEBILET [Concomitant]
  4. NOVONORM [Concomitant]
  5. THEOPHYLLINE [Concomitant]
  6. ALLOPURINOL [Concomitant]

REACTIONS (2)
  - DIARRHOEA [None]
  - WEIGHT DECREASED [None]
